FAERS Safety Report 6587639-2 (Version None)
Quarter: 2010Q1

REPORT INFORMATION
  Report Type: 
  Country: None (occurrence: None)
  Receive Date: 20100218
  Receipt Date: 20100209
  Transmission Date: 20100710
  Serious: Yes (Hospitalization)
  Sender: FDA-Public Use
  Company Number: US-WYE-H13490410

PATIENT
  Age: 76 Year
  Sex: Female

DRUGS (8)
  1. EFFEXOR [Suspect]
     Dosage: UNKNOWN
  2. DASATINIB [Suspect]
     Indication: BREAST CANCER METASTATIC
     Route: 048
     Dates: start: 20091030, end: 20091215
  3. DASATINIB [Suspect]
     Route: 048
     Dates: start: 20091216, end: 20100105
  4. XANAX [Suspect]
     Dosage: UNKNOWN
  5. OXYCODONE HCL [Suspect]
     Dosage: UNKNOWN
  6. MIRALAX [Suspect]
     Dosage: UNKNOWN
  7. ZOLPIDEM [Suspect]
     Dosage: UNKNOWN
  8. PROTONIX [Suspect]
     Dosage: UNKNOWN

REACTIONS (1)
  - ESCHERICHIA URINARY TRACT INFECTION [None]
